FAERS Safety Report 8858875 (Version 1)
Quarter: 2012Q4

REPORT INFORMATION
  Report Type: 
  Country: US (occurrence: US)
  Receive Date: 20121024
  Receipt Date: 20121024
  Transmission Date: 20130627
  Serious: No
  Sender: FDA-Public Use
  Company Number: US-009507513-1210USA009244

PATIENT
  Age: 30 Year
  Sex: Female
  Weight: 52.61 kg

DRUGS (1)
  1. IMPLANON [Suspect]
     Indication: CONTRACEPTION
     Dosage: 1 DF, every 3 years
     Route: 059
     Dates: start: 201003

REACTIONS (4)
  - Metrorrhagia [Recovered/Resolved]
  - Amenorrhoea [Recovered/Resolved]
  - Metrorrhagia [Recovered/Resolved]
  - Menstruation normal [Unknown]
